FAERS Safety Report 20964033 (Version 2)
Quarter: 2022Q4

REPORT INFORMATION
  Report Type: Spontaneous
  Country: JP (occurrence: JP)
  Receive Date: 20220615
  Receipt Date: 20221230
  Transmission Date: 20230113
  Serious: Yes (Hospitalization, Other)
  Sender: FDA-Public Use
  Company Number: JP-PFIZER INC-202200789928

PATIENT
  Age: 86 Year
  Sex: Female

DRUGS (1)
  1. METHOTREXATE SODIUM [Suspect]
     Active Substance: METHOTREXATE SODIUM
     Indication: Rheumatoid arthritis
     Dosage: 8 MG, WEEKLY
     Route: 048

REACTIONS (4)
  - Lymphoproliferative disorder [Recovering/Resolving]
  - Epstein-Barr virus associated lymphoproliferative disorder [Recovering/Resolving]
  - Central nervous system lesion [Recovering/Resolving]
  - Paralysis [Recovering/Resolving]
